FAERS Safety Report 11435285 (Version 1)
Quarter: 2015Q3

REPORT INFORMATION
  Report Type: Spontaneous
  Country: US (occurrence: US)
  Receive Date: 20150831
  Receipt Date: 20150831
  Transmission Date: 20151125
  Serious: Yes (Hospitalization)
  Sender: FDA-Public Use
  Company Number: US-TEVA-589055USA

PATIENT
  Sex: Female

DRUGS (1)
  1. COPAXONE [Suspect]
     Active Substance: GLATIRAMER ACETATE
     Indication: MULTIPLE SCLEROSIS
     Dosage: UNKNOWN FORM STRENGTH

REACTIONS (6)
  - Burning sensation [Unknown]
  - Vomiting [Unknown]
  - Tremor [Unknown]
  - Feeling hot [Unknown]
  - Diarrhoea [Unknown]
  - Injection site reaction [Unknown]

NARRATIVE: CASE EVENT DATE: 2002
